FAERS Safety Report 18987987 (Version 1)
Quarter: 2021Q1

REPORT INFORMATION
  Report Type: Spontaneous
  Country: DE (occurrence: DE)
  Receive Date: 20210309
  Receipt Date: 20210309
  Transmission Date: 20210420
  Serious: Yes (Hospitalization, Other)
  Sender: FDA-Public Use
  Company Number: NVSC2021DE049456

PATIENT
  Age: 61 Year
  Sex: Male
  Weight: 69 kg

DRUGS (2)
  1. RAMUCIRUMAB [Suspect]
     Active Substance: RAMUCIRUMAB
     Indication: PRODUCT USED FOR UNKNOWN INDICATION
     Dosage: LETZTE GABE AM 04012021
     Route: 065
  2. DOCETAXEL. [Suspect]
     Active Substance: DOCETAXEL
     Indication: PRODUCT USED FOR UNKNOWN INDICATION
     Dosage: LETZTE GABE AM 04012021
     Route: 065

REACTIONS (4)
  - General physical health deterioration [Unknown]
  - Arrhythmia [Unknown]
  - Tachycardia [Unknown]
  - Fatigue [Unknown]
